FAERS Safety Report 16786284 (Version 1)
Quarter: 2019Q3

REPORT INFORMATION
  Report Type: Spontaneous
  Country: US (occurrence: US)
  Receive Date: 20190909
  Receipt Date: 20190909
  Transmission Date: 20191005
  Serious: Yes (Hospitalization)
  Sender: FDA-Public Use
  Company Number: US-UNICHEM PHARMACEUTICALS (USA) INC-UCM201908-000394

PATIENT
  Age: 57 Year
  Sex: Female

DRUGS (1)
  1. DIVALPROEX SODIUM. [Suspect]
     Active Substance: DIVALPROEX SODIUM
     Indication: CHOREOATHETOSIS

REACTIONS (6)
  - Contusion [Unknown]
  - Subdural haemorrhage [Unknown]
  - Ecchymosis [Unknown]
  - Thrombocytopenia [Recovering/Resolving]
  - Anaemia [Unknown]
  - Haemorrhage [Unknown]
